FAERS Safety Report 9430480 (Version 1)
Quarter: 2013Q3

REPORT INFORMATION
  Report Type: Spontaneous
  Country: JP (occurrence: JP)
  Receive Date: 20130730
  Receipt Date: 20130730
  Transmission Date: 20140515
  Serious: Yes (Other)
  Sender: FDA-Public Use
  Company Number: JP-GLAXOSMITHKLINE-B0911153A

PATIENT
  Age: 74 Year
  Sex: Male

DRUGS (4)
  1. VALTREX [Suspect]
     Indication: HERPES SIMPLEX
     Dosage: 500MG PER DAY
     Route: 048
     Dates: start: 20130720, end: 20130721
  2. ADALAT-CR [Concomitant]
     Route: 048
  3. ALLELOCK [Concomitant]
     Route: 048
  4. CALTAN [Concomitant]
     Route: 048

REACTIONS (3)
  - Altered state of consciousness [Recovered/Resolved]
  - Asthenia [Unknown]
  - Overdose [Unknown]
